FAERS Safety Report 21378620 (Version 3)
Quarter: 2023Q2

REPORT INFORMATION
  Report Type: Report from Study
  Country: CA (occurrence: CA)
  Receive Date: 20220927
  Receipt Date: 20230628
  Transmission Date: 20230721
  Serious: Yes (Hospitalization)
  Sender: FDA-Public Use
  Company Number: CA-NOVARTISPH-NVSC2022CA121283

PATIENT
  Age: 28 Year
  Sex: Male

DRUGS (1)
  1. HYRIMOZ [Suspect]
     Active Substance: ADALIMUMAB-ADAZ
     Indication: Crohn^s disease
     Dosage: 40 MG, QW
     Route: 058
     Dates: start: 20220221

REACTIONS (4)
  - Crohn^s disease [Unknown]
  - Ill-defined disorder [Unknown]
  - Frequent bowel movements [Unknown]
  - Off label use [Unknown]
